FAERS Safety Report 21950260 (Version 2)
Quarter: 2023Q1

REPORT INFORMATION
  Report Type: Spontaneous
  Country: TH (occurrence: None)
  Receive Date: 20230203
  Receipt Date: 20230207
  Transmission Date: 20230418
  Serious: Yes (Death)
  Sender: FDA-Public Use
  Company Number: TH-Eisai Medical Research-EC-2023-133280

PATIENT
  Age: 36 Year
  Sex: Female

DRUGS (2)
  1. LENVIMA [Suspect]
     Active Substance: LENVATINIB
     Indication: Small cell lung cancer
     Route: 048
  2. PEMBROLIZUMAB [Suspect]
     Active Substance: PEMBROLIZUMAB
     Indication: Small cell lung cancer
     Dosage: UNKNOWN FREQUENCY
     Route: 042
     Dates: start: 20210909, end: 20211128

REACTIONS (5)
  - Feeding disorder [Fatal]
  - Infection [Recovered/Resolved]
  - Asthenia [Unknown]
  - Oral pain [Not Recovered/Not Resolved]
  - Inappropriate schedule of product administration [Unknown]

NARRATIVE: CASE EVENT DATE: 20210101
